FAERS Safety Report 11940954 (Version 1)
Quarter: 2016Q1

REPORT INFORMATION
  Report Type: Spontaneous
  Country: CA (occurrence: CA)
  Receive Date: 20160122
  Receipt Date: 20160122
  Transmission Date: 20160526
  Serious: Yes (Other)
  Sender: FDA-Public Use
  Company Number: CA-ELI_LILLY_AND_COMPANY-CA201601004990

PATIENT
  Age: 67 Year
  Sex: Female

DRUGS (1)
  1. HUMALOG [Suspect]
     Active Substance: INSULIN LISPRO
     Indication: DIABETES MELLITUS
     Dosage: UNK, PRN
     Route: 065
     Dates: start: 2001

REACTIONS (5)
  - Rheumatoid arthritis [Unknown]
  - Neoplasm malignant [Unknown]
  - Fatigue [Unknown]
  - Drug dose omission [Unknown]
  - Blood glucose increased [Unknown]
